FAERS Safety Report 17644796 (Version 1)
Quarter: 2020Q2

REPORT INFORMATION
  Report Type: Spontaneous
  Country: US (occurrence: US)
  Receive Date: 20200408
  Receipt Date: 20200408
  Transmission Date: 20200713
  Serious: Yes (Hospitalization)
  Sender: FDA-Public Use
  Company Number: None

PATIENT
  Age: 63 Year
  Sex: Male

DRUGS (3)
  1. ESOMEPRA MAG [Concomitant]
  2. REPATHA [Suspect]
     Active Substance: EVOLOCUMAB
     Indication: HYPERLIPIDAEMIA
     Dosage: ?          OTHER DOSE:1 PEN;?
     Route: 058
     Dates: start: 20181031
  3. MOBIC [Concomitant]
     Active Substance: MELOXICAM

REACTIONS (6)
  - Diarrhoea [None]
  - Abdominal pain upper [None]
  - Therapy interrupted [None]
  - Defaecation urgency [None]
  - Arthritis infective [None]
  - Knee operation [None]

NARRATIVE: CASE EVENT DATE: 20200307
